FAERS Safety Report 13187855 (Version 1)
Quarter: 2017Q1

REPORT INFORMATION
  Report Type: Spontaneous
  Country: US (occurrence: US)
  Receive Date: 20170206
  Receipt Date: 20170206
  Transmission Date: 20170428
  Serious: Yes (Death)
  Sender: FDA-Public Use
  Company Number: US-AUROBINDO-AUR-APL-2017-29056

PATIENT
  Age: 29 Year
  Sex: Male

DRUGS (2)
  1. DIVALPROEX SODIUM EXTENDED-RELEASE TABLETS USP 500MG [Suspect]
     Active Substance: DIVALPROEX SODIUM
     Indication: PRODUCT USED FOR UNKNOWN INDICATION
     Dosage: 90  TABS OF 500MG DIVALPROEX
     Route: 048
  2. L-CARNITINE                        /00878601/ [Suspect]
     Active Substance: LEVOCARNITINE
     Indication: HYPERAMMONAEMIA
     Route: 065

REACTIONS (4)
  - Toxicity to various agents [Fatal]
  - Cerebral haemorrhage [Fatal]
  - Brain oedema [Fatal]
  - Completed suicide [Fatal]
